FAERS Safety Report 9559397 (Version 1)
Quarter: 2013Q3

REPORT INFORMATION
  Report Type: Spontaneous
  Country: CA (occurrence: CA)
  Receive Date: 20130927
  Receipt Date: 20130927
  Transmission Date: 20140515
  Serious: Yes (Disabling)
  Sender: FDA-Public Use
  Company Number: CA-ASTRAZENECA-2013SE70727

PATIENT
  Age: 53 Year
  Sex: Female
  Weight: 47.6 kg

DRUGS (3)
  1. ATACAND [Suspect]
     Route: 048
  2. APO-BISOPROLOL [Concomitant]
  3. ASAPHEN EC [Concomitant]

REACTIONS (16)
  - Asthenia [Recovering/Resolving]
  - Chest pain [Recovering/Resolving]
  - Chromaturia [Recovering/Resolving]
  - Dyspnoea [Recovering/Resolving]
  - Eye movement disorder [Recovering/Resolving]
  - Headache [Recovering/Resolving]
  - Hypertension [Recovering/Resolving]
  - Insomnia [Recovering/Resolving]
  - Memory impairment [Recovering/Resolving]
  - Mental impairment [Recovering/Resolving]
  - Muscular weakness [Recovering/Resolving]
  - Myalgia [Recovering/Resolving]
  - Speech disorder [Recovering/Resolving]
  - Back pain [Recovering/Resolving]
  - Dizziness [Recovering/Resolving]
  - Drug ineffective [Recovering/Resolving]
